FAERS Safety Report 8973373 (Version 1)
Quarter: 2012Q4

REPORT INFORMATION
  Report Type: 
  Country: US (occurrence: US)
  Receive Date: 20121218
  Receipt Date: 20121218
  Transmission Date: 20130627
  Serious: No
  Sender: FDA-Public Use
  Company Number: US-BRISTOL-MYERS SQUIBB COMPANY-16950032

PATIENT
  Age: 9 Year
  Sex: Male

DRUGS (3)
  1. ABILIFY TABS 10 MG [Suspect]
     Dosage: 2 mg-10 mg
  2. LEXAPRO [Concomitant]
  3. PRILOSEC [Concomitant]

REACTIONS (3)
  - Vomiting [Unknown]
  - Headache [Unknown]
  - Weight increased [Unknown]
